FAERS Safety Report 5416050-2 (Version None)
Quarter: 2007Q3

REPORT INFORMATION
  Report Type: 
  Country: None (occurrence: None)
  Receive Date: 20070815
  Receipt Date: 20070807
  Transmission Date: 20080115
  Serious: Yes (Other)
  Sender: FDA-Public Use
  Company Number: JP-MERCK-0706USA03911

PATIENT
  Age: 57 Year
  Sex: Female

DRUGS (20)
  1. PEPCID RPD [Suspect]
     Route: 048
  2. ALLOPURINOL [Suspect]
     Route: 048
  3. NORVASC [Suspect]
     Route: 048
  4. SODIUM BICARBONATE [Suspect]
     Route: 048
  5. VASOTEC [Suspect]
     Route: 048
  6. LIPITOR [Suspect]
     Route: 048
     Dates: end: 20070601
  7. THYRADIN [Suspect]
     Route: 048
  8. LUPRAC [Suspect]
     Route: 048
  9. CINAL [Suspect]
     Route: 048
  10. URSO 250 [Suspect]
     Route: 048
  11. BIOFERMIN [Suspect]
     Route: 048
  12. PREDNISOLONE [Suspect]
     Route: 048
  13. CELLCEPT [Suspect]
     Route: 048
  14. LASIX [Suspect]
     Route: 048
  15. NEORAL [Suspect]
     Route: 048
  16. SULPERAZON [Suspect]
     Route: 042
     Dates: start: 20050701
  17. SULPERAZON [Suspect]
     Route: 042
     Dates: start: 20060101
  18. SULPERAZON [Suspect]
     Route: 042
     Dates: start: 20060801
  19. SULPERAZON [Suspect]
     Route: 042
     Dates: start: 20061201
  20. SULPERAZON [Suspect]
     Route: 042
     Dates: start: 20070328, end: 20070510

REACTIONS (4)
  - BLOOD PRESSURE DECREASED [None]
  - RHABDOMYOLYSIS [None]
  - SNEEZING [None]
  - VOMITING [None]
